FAERS Safety Report 4520282-5 (Version None)
Quarter: 2004Q4

REPORT INFORMATION
  Report Type: 
  Country: None (occurrence: None)
  Receive Date: 20041203
  Receipt Date: 20041203
  Transmission Date: 20050328
  Serious: Yes (Death)
  Sender: FDA-Public Use
  Company Number: None

PATIENT
  Age: 19 Year
  Sex: Male
  Weight: 61.4624 kg

DRUGS (2)
  1. PAROXETINE HCL [Suspect]
     Indication: MAJOR DEPRESSION
     Dosage: 20 MG  PO DAILY
     Route: 048
     Dates: start: 20040201
  2. PAROXETINE HCL [Suspect]
     Indication: SOCIAL PHOBIA
     Dosage: 20 MG  PO DAILY
     Route: 048
     Dates: start: 20040201

REACTIONS (1)
  - DRUG LEVEL INCREASED [None]
